APPROVED DRUG PRODUCT: METHADONE HYDROCHLORIDE
Active Ingredient: METHADONE HYDROCHLORIDE
Strength: 10MG/ML
Dosage Form/Route: INJECTABLE;INJECTION
Application: N021624 | Product #001 | TE Code: AP
Applicant: MYLAN INSTITUTIONAL LLC
Approved: Approved Prior to Jan 1, 1982 | RLD: Yes | RS: Yes | Type: RX